FAERS Safety Report 13921697 (Version 1)
Quarter: 2017Q3

REPORT INFORMATION
  Report Type: Spontaneous
  Country: US (occurrence: US)
  Receive Date: 20170830
  Receipt Date: 20170830
  Transmission Date: 20171127
  Serious: Yes (Hospitalization, Other)
  Sender: FDA-Public Use
  Company Number: US-APOTEX-2017AP017119

PATIENT
  Age: 34 Year
  Sex: Male

DRUGS (4)
  1. DALFAMPRIDINE [Suspect]
     Active Substance: DALFAMPRIDINE
     Indication: MULTIPLE SCLEROSIS
     Route: 065
  2. TEMAZEPAM. [Suspect]
     Active Substance: TEMAZEPAM
     Indication: MULTIPLE SCLEROSIS
     Route: 065
  3. VALACYCLOVIR TABLETS USP [Suspect]
     Active Substance: VALACYCLOVIR HYDROCHLORIDE
     Indication: MULTIPLE SCLEROSIS
     Route: 065
  4. TYSABRI [Suspect]
     Active Substance: NATALIZUMAB
     Indication: MULTIPLE SCLEROSIS
     Route: 042

REACTIONS (17)
  - Generalised tonic-clonic seizure [Recovered/Resolved]
  - Tachycardia [Unknown]
  - Blood pH decreased [None]
  - PO2 increased [None]
  - Loss of consciousness [Recovered/Resolved]
  - Respiratory rate increased [None]
  - Hyperhidrosis [Unknown]
  - Unresponsive to stimuli [Recovered/Resolved]
  - Blood potassium decreased [None]
  - Blood lactic acid decreased [None]
  - Blood glucose increased [None]
  - Drug resistance [None]
  - Intentional overdose [Unknown]
  - White blood cell count increased [Unknown]
  - Intentional overdose [None]
  - Blood pressure systolic increased [None]
  - PCO2 increased [None]
